FAERS Safety Report 4442280-2 (Version None)
Quarter: 2004Q3

REPORT INFORMATION
  Report Type: 
  Country: None (occurrence: None)
  Receive Date: 20040903
  Receipt Date: 20040715
  Transmission Date: 20050211
  Serious: Yes (Other)
  Sender: FDA-Public Use
  Company Number: 2004UW14738

PATIENT
  Age: 53 Year
  Sex: Female
  Weight: 90.7194 kg

DRUGS (6)
  1. CRESTOR [Suspect]
     Indication: BLOOD CHOLESTEROL INCREASED
     Dates: start: 20040101, end: 20040101
  2. DIOVAN [Concomitant]
  3. ZANTAC [Concomitant]
  4. REGLAN [Concomitant]
  5. ALLEGRA [Concomitant]
  6. GLUCOPHAGE [Concomitant]

REACTIONS (3)
  - HAEMATURIA [None]
  - LICHEN PLANUS [None]
  - URINARY TRACT INFECTION [None]
